FAERS Safety Report 6247819-2 (Version None)
Quarter: 2009Q2

REPORT INFORMATION
  Report Type: 
  Country: None (occurrence: None)
  Receive Date: 20090626
  Receipt Date: 20090615
  Transmission Date: 20091009
  Serious: Yes (Hospitalization)
  Sender: FDA-Public Use
  Company Number: FR-ELI_LILLY_AND_COMPANY-FR200906003347

PATIENT
  Sex: Male

DRUGS (5)
  1. GEMZAR [Suspect]
     Indication: BILE DUCT CANCER
     Dosage: 2000 MG, UNKNOWN
     Route: 042
     Dates: start: 20090420, end: 20090504
  2. ELOXATIN [Concomitant]
     Indication: BILE DUCT CANCER
     Dosage: 200 MG, UNKNOWN
     Route: 042
     Dates: start: 20090421, end: 20090504
  3. KYTRIL [Concomitant]
     Dosage: 3 MG
     Route: 042
     Dates: start: 20090420
  4. SOLU-MEDROL [Concomitant]
     Dosage: 120 MG, UNKNOWN
     Route: 065
     Dates: start: 20090421
  5. TRANXENE [Concomitant]
     Dosage: 20 MG, UNKNOWN
     Route: 065
     Dates: start: 20090421

REACTIONS (9)
  - CHILLS [None]
  - FACE OEDEMA [None]
  - HYPERAESTHESIA [None]
  - HYPOTENSION [None]
  - NAUSEA [None]
  - PYREXIA [None]
  - RASH ERYTHEMATOUS [None]
  - TACHYCARDIA [None]
  - VOMITING [None]
